FAERS Safety Report 4825241-0 (Version None)
Quarter: 2005Q4

REPORT INFORMATION
  Report Type: 
  Country: None (occurrence: None)
  Receive Date: 20051109
  Receipt Date: 20051027
  Transmission Date: 20060501
  Serious: Yes (Hospitalization)
  Sender: FDA-Public Use
  Company Number: 2005-134005-NL

PATIENT
  Age: 36 Year
  Sex: Female

DRUGS (1)
  1. NUVARING [Suspect]
     Indication: CONTRACEPTION
     Dosage: DF VAGINAL
     Route: 067
     Dates: start: 20050701

REACTIONS (4)
  - DIARRHOEA [None]
  - DRUG HYPERSENSITIVITY [None]
  - HYPERTHERMIA [None]
  - MEDICAL DEVICE COMPLICATION [None]
